FAERS Safety Report 4387474-X (Version None)
Quarter: 2004Q2

REPORT INFORMATION
  Report Type: 
  Country: None (occurrence: None)
  Receive Date: 20040630
  Receipt Date: 20040413
  Transmission Date: 20050107
  Serious: No
  Sender: FDA-Public Use
  Company Number: US-BRISTOL-MYERS SQUIBB COMPANY-12559365

PATIENT
  Age: 64 Year
  Sex: Male
  Weight: 63 kg

DRUGS (4)
  1. REYATAZ [Suspect]
     Indication: HIV INFECTION
     Route: 048
     Dates: start: 20040407, end: 20040401
  2. ZIAGEN [Concomitant]
  3. KALETRA [Concomitant]
  4. LISINOPRIL [Concomitant]

REACTIONS (1)
  - ABDOMINAL PAIN [None]
